FAERS Safety Report 21378003 (Version 1)
Quarter: 2022Q3

REPORT INFORMATION
  Report Type: Spontaneous
  Country: KR (occurrence: KR)
  Receive Date: 20220926
  Receipt Date: 20220926
  Transmission Date: 20221026
  Serious: Yes (Death, Other)
  Sender: FDA-Public Use
  Company Number: KR-009507513-2209KOR008555

PATIENT
  Sex: Male
  Weight: 63.5 kg

DRUGS (12)
  1. PREVYMIS [Suspect]
     Active Substance: LETERMOVIR
     Indication: Antiviral prophylaxis
     Dosage: STRENGTH: 480 MG, ONCE DAILY (QD)
     Route: 048
     Dates: start: 20210618, end: 20210923
  2. ALLOPURINOL [Concomitant]
     Active Substance: ALLOPURINOL
     Indication: Acute myeloid leukaemia
     Dosage: 100 MILLIGRAM, TID
     Route: 048
     Dates: start: 20210611, end: 20210615
  3. ZOYLEX [ACICLOVIR] [Concomitant]
     Indication: Infection prophylaxis
     Dosage: 300 MILLIGRAM, BID
     Route: 042
     Dates: start: 20210610, end: 20210629
  4. THYMOGLOBULINE [Concomitant]
     Active Substance: LAPINE T-LYMPHOCYTE IMMUNE GLOBULIN
     Indication: Acute myeloid leukaemia
     Dosage: 80.63 MILLIGRAM, QD
     Route: 042
     Dates: start: 20210614, end: 20210617
  5. BUSULFEX [Concomitant]
     Active Substance: BUSULFAN
     Indication: Acute myeloid leukaemia
     Dosage: 206.4 MILLIGRAM, QD
     Route: 042
     Dates: start: 20210612, end: 20210613
  6. FLUDARA [Concomitant]
     Active Substance: FLUDARABINE PHOSPHATE
     Indication: Acute myeloid leukaemia
     Dosage: 51.6 MILLIGRAM, QD
     Route: 042
     Dates: start: 20210611, end: 20210615
  7. METHOTREXATE [Concomitant]
     Active Substance: METHOTREXATE
     Indication: Prophylaxis against graft versus host disease
     Dosage: 8.6 MILLIGRAM, QD
     Route: 042
     Dates: start: 20210619, end: 20210619
  8. METHOTREXATE [Concomitant]
     Active Substance: METHOTREXATE
     Dosage: 8.6 MILLIGRAM, QD
     Route: 042
     Dates: start: 20210621, end: 20210621
  9. MYCAMINE [Concomitant]
     Active Substance: MICAFUNGIN SODIUM
     Indication: Antifungal prophylaxis
     Dosage: 50 MILLIGRAM, QD
     Route: 042
     Dates: start: 20210611, end: 20210705
  10. K CAB [Concomitant]
     Indication: Gastritis prophylaxis
     Dosage: 50 MILLIGRAM, QD
     Route: 048
     Dates: start: 20210610, end: 20210627
  11. URSODIOL [Concomitant]
     Active Substance: URSODIOL
     Indication: Prophylaxis
     Dosage: 100 MILLIGRAM, TID
     Route: 048
     Dates: start: 20210610, end: 20210627
  12. TACROBELL [TACROLIMUS MONOHYDRATE] [Concomitant]
     Indication: Prophylaxis against graft versus host disease
     Dosage: 1.92 MILLIGRAM, QD
     Route: 042
     Dates: start: 20210617, end: 20210621

REACTIONS (2)
  - Cardiac arrest [Fatal]
  - Seizure [Unknown]

NARRATIVE: CASE EVENT DATE: 20211019
